FAERS Safety Report 21345832 (Version 1)
Quarter: 2022Q3

REPORT INFORMATION
  Report Type: Report from Study
  Country: KR (occurrence: KR)
  Receive Date: 20220916
  Receipt Date: 20220916
  Transmission Date: 20221027
  Serious: Yes (Hospitalization, Other)
  Sender: FDA-Public Use
  Company Number: KR-ACERUSPHRM-2022-KR-000002

PATIENT
  Age: 82 Year
  Sex: Male
  Weight: 56 kg

DRUGS (29)
  1. NATESTO [Suspect]
     Active Substance: TESTOSTERONE
     Indication: Hypogonadism
     Dates: start: 20211021
  2. TOPAMAX [Concomitant]
     Active Substance: TOPIRAMATE
     Indication: Product used for unknown indication
     Route: 048
     Dates: start: 20151221
  3. KALLIDINOGENASE [Concomitant]
     Active Substance: KALLIDINOGENASE
     Indication: Product used for unknown indication
     Route: 048
     Dates: start: 20160222
  4. Riselton [Concomitant]
     Indication: Product used for unknown indication
     Route: 048
     Dates: start: 20170720
  5. NEURONTIN [Concomitant]
     Active Substance: GABAPENTIN
     Indication: Product used for unknown indication
     Route: 048
     Dates: start: 20180118
  6. Disgren [Concomitant]
     Indication: Product used for unknown indication
     Route: 048
     Dates: start: 20181206
  7. GASMOTIN SR [Concomitant]
     Indication: Product used for unknown indication
     Route: 048
     Dates: start: 20190620
  8. TOFISOPAM [Concomitant]
     Active Substance: TOFISOPAM
     Indication: Product used for unknown indication
     Route: 048
     Dates: start: 20210311
  9. Hebron F [Concomitant]
     Indication: Product used for unknown indication
     Route: 048
     Dates: start: 20220107
  10. Beamac [Concomitant]
     Indication: Product used for unknown indication
     Route: 048
     Dates: start: 20220304
  11. Pedero CR [Concomitant]
     Indication: Product used for unknown indication
     Route: 048
     Dates: start: 20220304
  12. LAYLA [Concomitant]
     Indication: Product used for unknown indication
     Route: 048
     Dates: start: 20140303
  13. Uniepi [Concomitant]
     Indication: Product used for unknown indication
     Route: 048
     Dates: start: 20220311
  14. ALLERGINON [Concomitant]
     Indication: Product used for unknown indication
     Route: 048
     Dates: start: 20220401
  15. ACETYLCYSTEINE [Concomitant]
     Active Substance: ACETYLCYSTEINE
     Indication: Product used for unknown indication
     Route: 048
     Dates: start: 20220401
  16. Mucosta SR [Concomitant]
     Indication: Product used for unknown indication
     Dates: start: 20211019, end: 20211031
  17. SUPRAX [Concomitant]
     Active Substance: CEFIXIME
     Indication: Product used for unknown indication
     Dates: start: 20211101, end: 20211114
  18. TWOLION [Concomitant]
     Indication: Product used for unknown indication
     Dates: start: 20211108, end: 20211114
  19. Cefnan [Concomitant]
     Indication: Product used for unknown indication
     Dates: start: 20220304, end: 20220310
  20. ALBENDAZOLE [Concomitant]
     Active Substance: ALBENDAZOLE
     Indication: Product used for unknown indication
     Dates: start: 20220304, end: 20220310
  21. Calclium carbonate [Concomitant]
     Indication: Product used for unknown indication
     Dates: start: 20220304
  22. LANSOPRAZOLE [Concomitant]
     Active Substance: LANSOPRAZOLE
     Indication: Product used for unknown indication
     Dates: start: 20220304
  23. TRAMAROL [Concomitant]
     Indication: Product used for unknown indication
     Route: 048
     Dates: start: 20180118
  24. Roxalex [Concomitant]
     Indication: Product used for unknown indication
     Route: 048
     Dates: start: 20191024
  25. PILOGEN [Concomitant]
     Indication: Product used for unknown indication
     Dosage: 0.5DF/DAY
     Route: 048
     Dates: start: 20210826
  26. HINECHOL [Concomitant]
     Indication: Product used for unknown indication
     Route: 048
     Dates: start: 20191114
  27. HANMI TAMS [Concomitant]
     Indication: Product used for unknown indication
     Route: 048
     Dates: start: 20200924
  28. Ribotril [Concomitant]
     Indication: Product used for unknown indication
     Route: 048
     Dates: start: 20070612
  29. CHOLINE ALFOSCERATE [Concomitant]
     Active Substance: CHOLINE ALFOSCERATE
     Indication: Product used for unknown indication
     Route: 048
     Dates: start: 20150112

REACTIONS (1)
  - Pyelonephritis acute [Recovering/Resolving]

NARRATIVE: CASE EVENT DATE: 20220211
